FAERS Safety Report 4983727-2 (Version None)
Quarter: 2006Q2

REPORT INFORMATION
  Report Type: 
  Country: None (occurrence: None)
  Receive Date: 20060425
  Receipt Date: 20060425
  Transmission Date: 20061013
  Serious: Yes (Hospitalization, Other)
  Sender: FDA-Public Use
  Company Number: None

PATIENT
  Sex: Female
  Weight: 49.1 kg

DRUGS (2)
  1. AMIFOSTINE [Suspect]
     Indication: AMYLOIDOSIS
     Dosage: 2040 MG
     Dates: start: 20060411, end: 20060412
  2. MELPHALAN [Suspect]
     Dosage: 170 MG
     Dates: start: 20060412, end: 20060412

REACTIONS (4)
  - NEUTROPHIL COUNT ABNORMAL [None]
  - OESOPHAGITIS [None]
  - RENAL FAILURE ACUTE [None]
  - WHITE BLOOD CELL DISORDER [None]
